FAERS Safety Report 23860167 (Version 2)
Quarter: 2024Q2

REPORT INFORMATION
  Report Type: Report from Study
  Country: NL (occurrence: NL)
  Receive Date: 20240515
  Receipt Date: 20240531
  Transmission Date: 20240716
  Serious: Yes (Death, Other)
  Sender: FDA-Public Use
  Company Number: NL-VER-202400039

PATIENT
  Age: 76 Year
  Sex: Male

DRUGS (4)
  1. TRIPTORELIN PAMOATE [Suspect]
     Active Substance: TRIPTORELIN PAMOATE
     Dosage: (11.25 MILLIGRAM(S), IN 3 MONTH)
     Route: 030
     Dates: start: 20210401, end: 20210401
  2. TRIPTORELIN PAMOATE [Suspect]
     Active Substance: TRIPTORELIN PAMOATE
     Dosage: (11.25 MILLIGRAM(S), IN 3 MONTH)
     Route: 030
     Dates: start: 20231218, end: 20231218
  3. TRIPTORELIN PAMOATE [Suspect]
     Active Substance: TRIPTORELIN PAMOATE
     Dosage: (11.25 MILLIGRAM(S), IN 3 MONTH)
     Route: 030
     Dates: start: 20240319, end: 20240319
  4. TRIPTORELIN PAMOATE [Suspect]
     Active Substance: TRIPTORELIN PAMOATE
     Dosage: 0.125 MILLIGRAM(S) (11.25 MILLIGRAM(S), 1 IN 3 MONTH)
     Route: 030
     Dates: start: 20230919, end: 20230919

REACTIONS (1)
  - Death [Fatal]

NARRATIVE: CASE EVENT DATE: 20240510
